FAERS Safety Report 20425577 (Version 1)
Quarter: 2022Q1

REPORT INFORMATION
  Report Type: Report from Study
  Country: US (occurrence: US)
  Receive Date: 20220204
  Receipt Date: 20220204
  Transmission Date: 20220423
  Serious: No
  Sender: FDA-Public Use
  Company Number: US-EXELIXIS-CABO-21039343

PATIENT
  Age: 23 Year
  Sex: Female

DRUGS (6)
  1. COMETRIQ [Suspect]
     Active Substance: CABOZANTINIB S-MALATE
     Indication: Peritoneal mesothelioma malignant
     Dosage: 60 MG, QD
     Route: 048
     Dates: start: 20160712
  2. COMETRIQ [Suspect]
     Active Substance: CABOZANTINIB S-MALATE
     Dosage: 40 MG,QD
     Route: 048
     Dates: end: 20210407
  3. COMETRIQ [Suspect]
     Active Substance: CABOZANTINIB S-MALATE
     Dosage: 40 MG, QD
     Route: 048
     Dates: start: 20210409
  4. COMETRIQ [Suspect]
     Active Substance: CABOZANTINIB S-MALATE
     Dosage: 20 MG, QD (VIA G-TUBE)
  5. LEVOTHYROXINE SODIUM [Concomitant]
     Active Substance: LEVOTHYROXINE SODIUM
     Dosage: 40  MG,QD
     Route: 048
     Dates: end: 20210407
  6. LEVOTHYROXINE SODIUM [Concomitant]
     Active Substance: LEVOTHYROXINE SODIUM
     Dosage: 40 MG,QD
     Route: 048
     Dates: start: 20210409

REACTIONS (3)
  - Product dose omission issue [Unknown]
  - Wrong technique in product usage process [Unknown]
  - Off label use [Unknown]

NARRATIVE: CASE EVENT DATE: 20210408
